FAERS Safety Report 18956268 (Version 2)
Quarter: 2022Q3

REPORT INFORMATION
  Report Type: Spontaneous
  Country: CA (occurrence: CA)
  Receive Date: 20210301
  Receipt Date: 20220812
  Transmission Date: 20221026
  Serious: Yes (Hospitalization, Other)
  Sender: FDA-Public Use
  Company Number: CA-TEVA-2021-CA-1883665

PATIENT
  Age: 38 Year
  Sex: Male

DRUGS (37)
  1. ACETAMINOPHEN [Suspect]
     Active Substance: ACETAMINOPHEN
     Indication: Product used for unknown indication
     Route: 065
  2. METHOTREXATE [Suspect]
     Active Substance: METHOTREXATE
     Indication: Vasculitis
     Route: 065
  3. PREDNISONE [Suspect]
     Active Substance: PREDNISONE
     Indication: Product used for unknown indication
     Route: 065
  4. PREDNISONE [Suspect]
     Active Substance: PREDNISONE
     Route: 065
  5. PREDNISONE [Suspect]
     Active Substance: PREDNISONE
     Route: 065
  6. PREDNISONE [Suspect]
     Active Substance: PREDNISONE
     Route: 065
  7. PREDNISONE [Suspect]
     Active Substance: PREDNISONE
     Route: 065
  8. PREDNISONE [Suspect]
     Active Substance: PREDNISONE
     Dosage: 10 MILLIGRAM DAILY;
     Route: 065
  9. PREDNISONE [Suspect]
     Active Substance: PREDNISONE
     Route: 065
  10. PREDNISONE [Suspect]
     Active Substance: PREDNISONE
     Route: 065
  11. ALBUTEROL [Suspect]
     Active Substance: ALBUTEROL
     Indication: Product used for unknown indication
     Route: 065
  12. ENTYVIO [Suspect]
     Active Substance: VEDOLIZUMAB
     Indication: Product used for unknown indication
     Route: 042
  13. ENTYVIO [Suspect]
     Active Substance: VEDOLIZUMAB
     Indication: Colitis ulcerative
  14. FORMOTEROL\MOMETASONE [Suspect]
     Active Substance: FORMOTEROL\MOMETASONE
     Indication: Product used for unknown indication
     Dosage: 4 DOSAGE FORMS DAILY;
     Route: 055
  15. METHOTREXATE [Suspect]
     Active Substance: METHOTREXATE
     Indication: Vasculitis
     Route: 048
  16. METHOTREXATE [Suspect]
     Active Substance: METHOTREXATE
     Route: 048
  17. NUCALA [Suspect]
     Active Substance: MEPOLIZUMAB
     Indication: Product used for unknown indication
     Route: 065
  18. OMNARIS [Suspect]
     Active Substance: CICLESONIDE
     Indication: Product used for unknown indication
     Route: 065
  19. OMNARIS [Suspect]
     Active Substance: CICLESONIDE
     Route: 050
  20. SINGULAIR [Suspect]
     Active Substance: MONTELUKAST SODIUM
     Indication: Asthma
     Dosage: 10 MILLIGRAM DAILY;
     Route: 065
  21. SYMBICORT [Suspect]
     Active Substance: BUDESONIDE\FORMOTEROL FUMARATE DIHYDRATE
     Indication: Product used for unknown indication
     Route: 055
  22. TIOTROPIUM BROMIDE [Suspect]
     Active Substance: TIOTROPIUM BROMIDE
     Indication: Asthma
     Route: 065
  23. TYLENOL [Suspect]
     Active Substance: ACETAMINOPHEN
     Indication: Product used for unknown indication
     Route: 065
  24. UMECLIDINIUM BROMIDE [Suspect]
     Active Substance: UMECLIDINIUM BROMIDE
     Indication: Asthma
     Route: 055
  25. VEDOLIZUMAB [Suspect]
     Active Substance: VEDOLIZUMAB
     Indication: Colitis ulcerative
     Route: 042
  26. BUDESONIDE\FORMOTEROL FUMARATE [Suspect]
     Active Substance: BUDESONIDE\FORMOTEROL FUMARATE
     Indication: Product used for unknown indication
     Route: 050
  27. SPIRIVA [Suspect]
     Active Substance: TIOTROPIUM BROMIDE MONOHYDRATE
     Indication: Asthma
     Route: 065
  28. ZENHALE [Suspect]
     Active Substance: FORMOTEROL FUMARATE\MOMETASONE FUROATE
     Indication: Product used for unknown indication
     Route: 055
  29. CALCIUM [Concomitant]
     Active Substance: CALCIUM
     Indication: Supplementation therapy
     Route: 065
  30. FOLATE SODIUM [Concomitant]
     Active Substance: FOLATE SODIUM
     Indication: Product used for unknown indication
     Dosage: 5 MILLIGRAM DAILY;
     Route: 048
  31. FOLIC ACID [Concomitant]
     Active Substance: FOLIC ACID
     Indication: Product used for unknown indication
     Dosage: 5 MILLIGRAM DAILY;
     Route: 048
  32. FERRIC POLYSACCHARIDE COMPLEX [Concomitant]
     Active Substance: FERRIC POLYSACCHARIDE COMPLEX
     Indication: Product used for unknown indication
     Dosage: 150 MILLIGRAM DAILY;
  33. VITAMIN B12 [Concomitant]
     Active Substance: CYANOCOBALAMIN
     Indication: Supplementation therapy
     Dosage: 1000 MICROGRAM DAILY;
     Route: 048
  34. VITAMIN D [Concomitant]
     Active Substance: VITAMIN D NOS
     Indication: Supplementation therapy
     Route: 065
  35. CYANOCOBALAMIN [Concomitant]
     Active Substance: CYANOCOBALAMIN
     Indication: Supplementation therapy
     Dosage: 1000 MICROGRAM DAILY;
     Route: 048
  36. CYANOCOBALAMIN [Concomitant]
     Active Substance: CYANOCOBALAMIN
     Dosage: 1000 MICROGRAM DAILY;
  37. ERGOCALCIFEROL [Concomitant]
     Active Substance: ERGOCALCIFEROL
     Indication: Supplementation therapy

REACTIONS (31)
  - Abdominal pain [Unknown]
  - Anaemia [Unknown]
  - Asthma [Unknown]
  - Blood test abnormal [Unknown]
  - Chest discomfort [Unknown]
  - Colitis [Unknown]
  - Condition aggravated [Unknown]
  - Cough [Unknown]
  - Decreased appetite [Unknown]
  - Dyspnoea [Unknown]
  - Dyspnoea exertional [Unknown]
  - Eosinophilia [Unknown]
  - Gastrointestinal disorder [Unknown]
  - Headache [Unknown]
  - Hypotension [Unknown]
  - Insomnia [Unknown]
  - Interstitial lung disease [Unknown]
  - Iron deficiency [Unknown]
  - Myalgia [Unknown]
  - Obstructive airways disorder [Unknown]
  - Pericardial effusion [Unknown]
  - Photophobia [Unknown]
  - Pulmonary function test decreased [Unknown]
  - Rectal haemorrhage [Unknown]
  - Sinusitis [Unknown]
  - Systolic dysfunction [Unknown]
  - Vasculitis [Unknown]
  - Wheezing [Unknown]
  - Therapeutic product effect incomplete [Unknown]
  - Treatment noncompliance [Unknown]
  - Blood pressure decreased [Unknown]
